FAERS Safety Report 15090563 (Version 9)
Quarter: 2019Q3

REPORT INFORMATION
  Report Type: Spontaneous
  Country: US (occurrence: US)
  Receive Date: 20180629
  Receipt Date: 20190821
  Transmission Date: 20191004
  Serious: Yes (Other)
  Sender: FDA-Public Use
  Company Number: US-PFIZER INC-2018232985

PATIENT
  Age: 75 Year
  Sex: Female
  Weight: 104 kg

DRUGS (12)
  1. COD LIVER OIL [Concomitant]
     Active Substance: COD LIVER OIL
     Indication: MACULAR DEGENERATION
     Dosage: 1000 MG, UNK
  2. MAGNESIUM [Concomitant]
     Active Substance: MAGNESIUM
     Indication: MACULAR DEGENERATION
     Dosage: UNK
  3. LEVOTHYROXINE. [Concomitant]
     Active Substance: LEVOTHYROXINE
     Indication: THYROID DISORDER
     Dosage: 75 UG, 1X/DAY
     Route: 048
  4. IBRANCE [Suspect]
     Active Substance: PALBOCICLIB
     Indication: BREAST CANCER METASTATIC
     Dosage: 125 MG, CYCLIC (ONCE DAILY FOR 21 DAYS ON, 7 DAYS OFF)
     Route: 048
     Dates: start: 201805
  5. PRESERVISION 3 [Concomitant]
     Active Substance: MINERALS\OMEGA-3 FATTY ACIDS\VITAMINS
     Indication: MACULAR DEGENERATION
     Dosage: UNK
  6. BABY ASPIRIN [Concomitant]
     Active Substance: ASPIRIN
     Dosage: UNK
  7. PROBIOTIC [Concomitant]
     Active Substance: PROBIOTICS NOS
     Indication: MACULAR DEGENERATION
     Dosage: UNK
  8. OMEPRAZOLE. [Concomitant]
     Active Substance: OMEPRAZOLE
     Indication: DYSPEPSIA
     Dosage: 40 MG, 1X/DAY (LATE AFTERNOON)
     Route: 048
  9. CALCIUM [Concomitant]
     Active Substance: CALCIUM
     Indication: MACULAR DEGENERATION
     Dosage: UNK
  10. VITAMIN B [Concomitant]
     Active Substance: VITAMIN B
     Indication: MACULAR DEGENERATION
     Dosage: UNK
  11. IBRANCE [Suspect]
     Active Substance: PALBOCICLIB
     Dosage: 100 MG, CYCLIC (ONCE DAILY FOR 21 DAYS ON, 7 DAYS OFF)
  12. FULVESTRANT. [Concomitant]
     Active Substance: FULVESTRANT
     Indication: BREAST CANCER METASTATIC
     Dosage: UNK, MONTHLY MONTHLY (TWO 250 MG ON EACH SIDE OF BACK SIDE, 28 DAY TIME RELEASES)
     Route: 030

REACTIONS (27)
  - Feeling abnormal [Unknown]
  - Tumour marker increased [Unknown]
  - Cough [Not Recovered/Not Resolved]
  - Neutrophil count decreased [Unknown]
  - Malaise [Unknown]
  - Immune system disorder [Unknown]
  - Taste disorder [Unknown]
  - White blood cell count decreased [Unknown]
  - Viral infection [Recovered/Resolved]
  - Respiratory disorder [Unknown]
  - Dizziness [Not Recovered/Not Resolved]
  - Ventricular extrasystoles [Not Recovered/Not Resolved]
  - Asthenia [Recovered/Resolved]
  - Fatigue [Recovering/Resolving]
  - Nail growth abnormal [Not Recovered/Not Resolved]
  - Insomnia [Unknown]
  - Musculoskeletal chest pain [Unknown]
  - Multiple allergies [Recovered/Resolved]
  - Secretion discharge [Unknown]
  - Upper respiratory tract infection [Recovered/Resolved]
  - Constipation [Unknown]
  - Red blood cell count decreased [Unknown]
  - Carotid artery occlusion [Unknown]
  - Skin fissures [Unknown]
  - Dry skin [Not Recovered/Not Resolved]
  - Nail disorder [Not Recovered/Not Resolved]
  - Influenza [Recovered/Resolved]

NARRATIVE: CASE EVENT DATE: 201811
